FAERS Safety Report 20023981 (Version 1)
Quarter: 2021Q4

REPORT INFORMATION
  Report Type: Spontaneous
  Country: US (occurrence: US)
  Receive Date: 20211102
  Receipt Date: 20211102
  Transmission Date: 20220303
  Serious: Yes (Other)
  Sender: FDA-Public Use
  Company Number: US-PFIZER INC-202101417195

PATIENT
  Age: 50 Year
  Sex: Female

DRUGS (12)
  1. XELJANZ XR [Suspect]
     Active Substance: TOFACITINIB CITRATE
     Indication: Rheumatoid arthritis
     Dosage: 11 MG, DAILY
     Route: 048
     Dates: start: 202110
  2. VITAMIN D2 [Concomitant]
     Active Substance: ERGOCALCIFEROL
     Dosage: 10 UG
  3. OXYMETAZOLINE HYDROCHLORIDE [Concomitant]
     Active Substance: OXYMETAZOLINE HYDROCHLORIDE
     Dosage: 10 MG
  4. TRAZODONE HCL [Concomitant]
     Active Substance: TRAZODONE HYDROCHLORIDE
     Dosage: 100 MG
  5. VERAPAMIL [Concomitant]
     Active Substance: VERAPAMIL HYDROCHLORIDE
     Dosage: 120 MG, 120 MG CAP24H PEL
  6. DULOXETINE HYDROCHLORIDE [Concomitant]
     Active Substance: DULOXETINE HYDROCHLORIDE
     Dosage: 20 MG, CAPSULE DR
  7. MYRBETRIQ [Concomitant]
     Active Substance: MIRABEGRON
     Dosage: 25 MG TAB ER 24H
  8. PREGABALIN [Concomitant]
     Active Substance: PREGABALIN
     Dosage: 100 MG CAPSULE
  9. CELECOXIB [Concomitant]
     Active Substance: CELECOXIB
     Dosage: 100 MG
  10. PHENTERMINE HYDROCHLORIDE [Concomitant]
     Active Substance: PHENTERMINE HYDROCHLORIDE
     Dosage: 15 MG
  11. OMEPRAZOLE [Concomitant]
     Active Substance: OMEPRAZOLE
     Dosage: 10 MG CAPSULE DR
  12. TRAMADOL HCL [Concomitant]
     Active Substance: TRAMADOL HYDROCHLORIDE
     Dosage: 50 MG

REACTIONS (1)
  - Pain [Unknown]
